FAERS Safety Report 15360007 (Version 2)
Quarter: 2018Q3

REPORT INFORMATION
  Report Type: Report from Study
  Country: None (occurrence: IL)
  Receive Date: 20180907
  Receipt Date: 20180919
  Transmission Date: 20181010
  Serious: Yes (Death)
  Sender: FDA-Public Use
  Company Number: IL-ABBVIE-18S-082-2477841-00

PATIENT
  Sex: Female

DRUGS (1)
  1. DUODOPA [Suspect]
     Active Substance: CARBIDOPA\LEVODOPA
     Indication: PARKINSON^S DISEASE
     Dosage: CURRENT MD? 7.5 ML, CFR? 2.1 ML/ HOUR,?CURRENT ED? 1.4 ML
     Route: 050
     Dates: start: 20130701

REACTIONS (2)
  - Completed suicide [Fatal]
  - Depression [Fatal]
